FAERS Safety Report 12267848 (Version 9)
Quarter: 2017Q1

REPORT INFORMATION
  Report Type: Report from Study
  Country: AT (occurrence: AT)
  Receive Date: 20160414
  Receipt Date: 20170216
  Transmission Date: 20170428
  Serious: Yes (Death, Hospitalization, Other)
  Sender: FDA-Public Use
  Company Number: AT-INCYTE CORPORATION-2014IN003239

PATIENT
  Age: 76 Year
  Sex: Male
  Weight: 81 kg

DRUGS (62)
  1. THROMBO ASS [Concomitant]
     Active Substance: ASPIRIN
     Dosage: UNK
     Route: 065
     Dates: start: 20150921, end: 20150927
  2. BISOPROLOL [Concomitant]
     Active Substance: BISOPROLOL
     Indication: HYPERTENSION
     Dosage: 0.5 DF, QD (0-0-1/2)
     Route: 065
     Dates: start: 20120316
  3. LASIX [Concomitant]
     Active Substance: FUROSEMIDE
     Indication: OEDEMA PERIPHERAL
     Dosage: 0.5 DF, PRN (1/2 WHEN NEDED)
     Route: 065
     Dates: start: 20120709
  4. AUGMENTIN [Concomitant]
     Active Substance: AMOXICILLIN\CLAVULANATE POTASSIUM
     Indication: INFLAMMATION
     Dosage: 1 G, BID FURTHER ON 7 DAYS
     Route: 065
     Dates: start: 20150305, end: 20150321
  5. AUGMENTIN [Concomitant]
     Active Substance: AMOXICILLIN\CLAVULANATE POTASSIUM
     Dosage: UNK
     Route: 065
     Dates: start: 20150914, end: 20150920
  6. NOVALGIN [Concomitant]
     Active Substance: METAMIZOLE SODIUM
     Indication: ARTHRALGIA
     Dosage: 500 MG, TID
     Route: 065
     Dates: start: 20141128, end: 20150630
  7. PLAVIX [Concomitant]
     Active Substance: CLOPIDOGREL BISULFATE
     Indication: CORONARY ARTERY DISEASE
     Dosage: UNK
     Route: 065
     Dates: start: 20100531, end: 20140622
  8. RINGER LACTAT                      /03352501/ [Concomitant]
     Dosage: UNK
     Route: 065
     Dates: start: 20150407, end: 20150407
  9. AVELOX [Concomitant]
     Active Substance: MOXIFLOXACIN HYDROCHLORIDE
     Indication: PYREXIA
     Dosage: UNK
     Route: 065
     Dates: start: 20150701, end: 20150813
  10. JAKAVI [Suspect]
     Active Substance: RUXOLITINIB
     Dosage: 30 MG, UNK
     Route: 048
     Dates: start: 20150526, end: 20150531
  11. AUGMENTIN [Concomitant]
     Active Substance: AMOXICILLIN\CLAVULANATE POTASSIUM
     Dosage: UNK
     Route: 065
     Dates: start: 20160427, end: 20160501
  12. AUGMENTIN [Concomitant]
     Active Substance: AMOXICILLIN\CLAVULANATE POTASSIUM
     Dosage: UNK
     Route: 065
     Dates: start: 20150520, end: 20150526
  13. DANCOR [Concomitant]
     Active Substance: NICORANDIL
     Indication: CORONARY ARTERY DISEASE
     Dosage: UNK
     Route: 065
     Dates: start: 20100531, end: 20150426
  14. PANTOLOC//PANTOPRAZOLE SODIUM SESQUIHYDRATE [Concomitant]
     Active Substance: PANTOPRAZOLE SODIUM
     Indication: PRODUCT USED FOR UNKNOWN INDICATION
  15. AUGMENTIN [Concomitant]
     Active Substance: AMOXICILLIN\CLAVULANATE POTASSIUM
     Indication: PRODUCT USED FOR UNKNOWN INDICATION
     Dosage: UNK
     Dates: start: 20150914, end: 20150920
  16. NEURONTIN [Concomitant]
     Active Substance: GABAPENTIN
     Indication: NEURALGIA
     Dosage: UNK
     Route: 065
     Dates: start: 20160113
  17. JAKAVI [Suspect]
     Active Substance: RUXOLITINIB
     Dosage: 20 MG, UNK
     Route: 048
     Dates: start: 20150724, end: 20150813
  18. JAKAVI [Suspect]
     Active Substance: RUXOLITINIB
     Dosage: 10 MG, UNK
     Route: 048
     Dates: start: 20150814
  19. SORTIS [Concomitant]
     Active Substance: ATORVASTATIN
     Indication: HYPERCHOLESTEROLAEMIA
     Dosage: 0.5 DF, QD (0-0-1/2)
     Route: 065
     Dates: start: 20100531
  20. AUGMENTIN [Concomitant]
     Active Substance: AMOXICILLIN\CLAVULANATE POTASSIUM
     Indication: PYREXIA
     Dosage: UNK
     Route: 065
     Dates: start: 20150305, end: 20160501
  21. APREDNISLON [Concomitant]
     Active Substance: PREDNISOLONE
     Indication: PROPHYLAXIS
     Dosage: UNK
     Route: 065
     Dates: start: 20141030, end: 20141103
  22. JAKAVI [Suspect]
     Active Substance: RUXOLITINIB
     Dosage: 15 MG, UNK
     Route: 048
     Dates: start: 20150522, end: 20150525
  23. JAKAVI [Suspect]
     Active Substance: RUXOLITINIB
     Dosage: 40 MG, UNK
     Route: 048
     Dates: start: 20150601, end: 20150723
  24. THROMBO ASS [Concomitant]
     Active Substance: ASPIRIN
     Dosage: 100 MG, QD
     Route: 065
     Dates: start: 20141210, end: 20150107
  25. NOVALGIN [Concomitant]
     Active Substance: METAMIZOLE SODIUM
     Indication: CHEST PAIN
     Dosage: UNK
     Route: 065
     Dates: start: 20150914, end: 20150920
  26. RINGER LACTAT                      /03352501/ [Concomitant]
     Indication: DEHYDRATION
     Dosage: UNK
     Dates: start: 20150309, end: 20150407
  27. AVELOX [Concomitant]
     Active Substance: MOXIFLOXACIN HYDROCHLORIDE
     Indication: ORAL HERPES
     Dosage: UNK
     Route: 065
     Dates: start: 20150701, end: 20150705
  28. LIDAPRIM [Concomitant]
     Indication: INFECTION
     Dosage: UNK
     Route: 065
     Dates: start: 20150907, end: 20150913
  29. UROSIN [Concomitant]
     Active Substance: ALLOPURINOL
     Indication: PRODUCT USED FOR UNKNOWN INDICATION
     Dosage: UNK
     Route: 065
     Dates: start: 20150305
  30. JAKAVI [Suspect]
     Active Substance: RUXOLITINIB
     Dosage: 15 MG, QD
     Route: 048
  31. JAKAVI [Suspect]
     Active Substance: RUXOLITINIB
     Dosage: 30 MG, UNK
     Route: 048
     Dates: start: 20130710, end: 20131013
  32. JAKAVI [Suspect]
     Active Substance: RUXOLITINIB
     Dosage: 15 MG, QD
     Route: 048
  33. LEVOFLOXACIN. [Concomitant]
     Active Substance: LEVOFLOXACIN
     Indication: HYPERSENSITIVITY
     Route: 065
  34. THROMBO ASS [Concomitant]
     Active Substance: ASPIRIN
     Indication: THROMBOSIS
     Dosage: UNK
     Route: 065
     Dates: start: 20100513, end: 20141221
  35. THROMBO ASS [Concomitant]
     Active Substance: ASPIRIN
     Dosage: UNK
     Route: 065
     Dates: start: 20160224
  36. NOVALGIN [Concomitant]
     Active Substance: METAMIZOLE SODIUM
     Dosage: UNK
     Route: 065
     Dates: start: 20151202
  37. UROSIN [Concomitant]
     Active Substance: ALLOPURINOL
     Indication: PROPHYLAXIS
     Dosage: 30 MG, QD
     Route: 065
     Dates: start: 20141121, end: 20141222
  38. JAKAVI [Suspect]
     Active Substance: RUXOLITINIB
     Indication: MYELOFIBROSIS
     Dosage: 40 MG, QD
     Route: 048
     Dates: start: 20120319
  39. LEVOFLOXACIN. [Concomitant]
     Active Substance: LEVOFLOXACIN
     Route: 065
  40. THROMBO ASS [Concomitant]
     Active Substance: ASPIRIN
     Dosage: UNK
     Route: 065
     Dates: start: 20150522, end: 20150723
  41. RAMIPRIL. [Concomitant]
     Active Substance: RAMIPRIL
     Indication: HYPERTENSION
     Dosage: UNK
     Route: 065
     Dates: start: 20100531, end: 20150427
  42. APREDNISLON [Concomitant]
     Active Substance: PREDNISOLONE
     Indication: PRODUCT USED FOR UNKNOWN INDICATION
     Dosage: UNK
     Route: 065
     Dates: start: 20141210, end: 20141214
  43. TRAMAL [Concomitant]
     Active Substance: TRAMADOL
     Indication: ARTHRALGIA
     Dosage: PRN
     Route: 065
     Dates: start: 20141121, end: 20150630
  44. FAMVIR//FAMCICLOVIR [Concomitant]
     Indication: ORAL HERPES
     Dosage: UNK
     Route: 065
     Dates: start: 20150730, end: 20150819
  45. THROMBO ASS [Concomitant]
     Active Substance: ASPIRIN
     Dosage: UNK
     Route: 065
     Dates: start: 20150312, end: 20150427
  46. THROMBO ASS [Concomitant]
     Active Substance: ASPIRIN
     Dosage: UNK
     Route: 065
  47. HYDROXYUREA. [Concomitant]
     Active Substance: HYDROXYUREA
     Indication: PRODUCT USED FOR UNKNOWN INDICATION
     Dosage: 500 MG, UNK
     Route: 065
     Dates: end: 20150730
  48. EXJADE [Concomitant]
     Active Substance: DEFERASIROX
     Indication: IRON OVERLOAD
     Dosage: 500 MG, PRN (IF NEEDED)
     Route: 065
     Dates: start: 20150429
  49. APREDNISLON [Concomitant]
     Active Substance: PREDNISOLONE
     Dosage: UNK
     Route: 065
     Dates: start: 20150102, end: 20150106
  50. APREDNISLON [Concomitant]
     Active Substance: PREDNISOLONE
     Dosage: UNK
     Route: 065
     Dates: start: 20150324, end: 20150327
  51. RINGER LACTAT                      /03352501/ [Concomitant]
     Dosage: UNK
     Route: 065
     Dates: start: 20150309, end: 20150309
  52. JAKAVI [Suspect]
     Active Substance: RUXOLITINIB
     Dosage: 35 MG, UNK
     Route: 048
     Dates: start: 20131014, end: 20141029
  53. ERYTHROCYTES [Concomitant]
     Active Substance: HUMAN RED BLOOD CELL
     Indication: PRODUCT USED FOR UNKNOWN INDICATION
     Dosage: 4 CONCETRATES
     Route: 065
     Dates: start: 20151030, end: 20151031
  54. THROMBO ASS [Concomitant]
     Active Substance: ASPIRIN
     Dosage: UNK
     Route: 065
     Dates: start: 20100531, end: 20141221
  55. SPIROBENE [Concomitant]
     Active Substance: SPIRONOLACTONE
     Indication: HYPERTENSION
     Dosage: 100 MG, QOD (1/S EVERY OTHER DAY)
     Route: 065
     Dates: start: 20140325
  56. APREDNISLON [Concomitant]
     Active Substance: PREDNISOLONE
     Dosage: UNK
     Route: 065
     Dates: start: 20150127, end: 20150131
  57. APREDNISLON [Concomitant]
     Active Substance: PREDNISOLONE
     Dosage: UNK
     Route: 065
     Dates: start: 20150217, end: 20150217
  58. APREDNISLON [Concomitant]
     Active Substance: PREDNISOLONE
     Dosage: UNK
     Route: 065
  59. PANTOLOC//PANTOPRAZOLE SODIUM SESQUIHYDRATE [Concomitant]
     Active Substance: PANTOPRAZOLE SODIUM
     Indication: GASTRIC DISORDER
     Dosage: UNK UNK, PRN
     Route: 065
     Dates: start: 20140627, end: 201605
  60. RINGER LACTAT                      /03352501/ [Concomitant]
     Dosage: UNK
     Route: 065
     Dates: start: 20150330, end: 20150330
  61. AVELOX [Concomitant]
     Active Substance: MOXIFLOXACIN HYDROCHLORIDE
     Dosage: UNK
     Route: 065
     Dates: start: 20150730, end: 20150813
  62. MEXALEN [Concomitant]
     Active Substance: ACETAMINOPHEN
     Indication: PYREXIA
     Dosage: UNK
     Route: 065
     Dates: start: 20150303, end: 20150304

REACTIONS (30)
  - Second primary malignancy [Recovering/Resolving]
  - Blood alkaline phosphatase increased [Unknown]
  - White blood cell count increased [Unknown]
  - Blood uric acid increased [Unknown]
  - Pyrexia [Recovered/Resolved]
  - Inflammation [Recovered/Resolved]
  - Diffuse large B-cell lymphoma [Recovered/Resolved]
  - Systolic dysfunction [Unknown]
  - Haemorrhage [Recovered/Resolved]
  - Mitral valve incompetence [Unknown]
  - Aortic stenosis [Unknown]
  - Anaemia [Unknown]
  - Peripheral vascular disorder [Unknown]
  - Osteonecrosis [Recovered/Resolved]
  - Arteriosclerosis [Recovered/Resolved]
  - Coronary artery disease [Recovered/Resolved]
  - Myocardial ischaemia [Unknown]
  - Respiratory distress [Recovering/Resolving]
  - Activated partial thromboplastin time prolonged [Unknown]
  - Hyperlipidaemia [Unknown]
  - Heart valve stenosis [Recovered/Resolved]
  - Osteitis [Recovered/Resolved]
  - Myelofibrosis [Fatal]
  - Right ventricular dilatation [Fatal]
  - Back pain [Unknown]
  - Haematoma [Recovered/Resolved]
  - Acute myeloid leukaemia [Unknown]
  - Platelet count increased [Unknown]
  - Prothrombin time prolonged [Unknown]
  - C-reactive protein increased [Unknown]

NARRATIVE: CASE EVENT DATE: 20140906
